FAERS Safety Report 6922887-0 (Version None)
Quarter: 2010Q3

REPORT INFORMATION
  Report Type: 
  Country: None (occurrence: None)
  Receive Date: 20100813
  Receipt Date: 20100804
  Transmission Date: 20110219
  Serious: Yes (Hospitalization)
  Sender: FDA-Public Use
  Company Number: FR-KINGPHARMUSA00001-K201000985

PATIENT
  Age: 79 Year
  Sex: Male

DRUGS (6)
  1. ALTACE [Suspect]
     Dosage: UNK
     Route: 048
     Dates: start: 20100624, end: 20100629
  2. DIGITALINE NATIVELLE [Suspect]
     Dosage: 0.25 MG, QD
     Route: 048
  3. LASIX [Concomitant]
  4. KARDEGIC [Concomitant]
  5. OMEPRAZOLE [Concomitant]
  6. METFORMIN HCL [Concomitant]

REACTIONS (8)
  - ANURIA [None]
  - ASTHENIA [None]
  - BLOOD CREATININE INCREASED [None]
  - BLOOD POTASSIUM INCREASED [None]
  - BRADYCARDIA [None]
  - CARDIOACTIVE DRUG LEVEL INCREASED [None]
  - RENAL FAILURE ACUTE [None]
  - VOMITING [None]
